FAERS Safety Report 6712621-1 (Version None)
Quarter: 2010Q2

REPORT INFORMATION
  Report Type: 
  Country: None (occurrence: None)
  Receive Date: 20100505
  Receipt Date: 20100505
  Transmission Date: 20101027
  Serious: Yes (Other)
  Sender: FDA-Public Use
  Company Number: None

PATIENT
  Sex: Female
  Weight: 72.5755 kg

DRUGS (2)
  1. BENADRYL [Suspect]
     Indication: DERMATITIS CONTACT
     Dosage: 1 EVERY 6 HRS. 3/31/10 - 4/2 OR 4/3/10
     Dates: start: 20100414, end: 20100416
  2. BENADRYL [Suspect]
     Indication: DERMATITIS CONTACT
     Dosage: 1 EVERY 6 HRS. 3/31/10 - 4/2 OR 4/3/10
     Dates: start: 20100331

REACTIONS (4)
  - DIARRHOEA [None]
  - EXPIRED DRUG ADMINISTERED [None]
  - MUSCLE SPASMS [None]
  - NAUSEA [None]
